FAERS Safety Report 11121792 (Version 1)
Quarter: 2015Q2

REPORT INFORMATION
  Report Type: Report from Study
  Country: US (occurrence: US)
  Receive Date: 20150519
  Receipt Date: 20150519
  Transmission Date: 20150821
  Serious: Yes (Other)
  Sender: FDA-Public Use
  Company Number: US-SA-2015SA065805

PATIENT
  Age: 58 Year
  Sex: Male

DRUGS (1)
  1. LANTUS [Suspect]
     Active Substance: INSULIN GLARGINE
     Dosage: VIALS
     Route: 065
     Dates: start: 1995

REACTIONS (2)
  - Cardiac pacemaker insertion [Unknown]
  - Renal transplant [Unknown]

NARRATIVE: CASE EVENT DATE: 20080101
